FAERS Safety Report 6946667-5 (Version None)
Quarter: 2010Q3

REPORT INFORMATION
  Report Type: 
  Country: None (occurrence: None)
  Receive Date: 20100827
  Receipt Date: 20090804
  Transmission Date: 20110219
  Serious: No
  Sender: FDA-Public Use
  Company Number: US-ABBOTT-09P-163-0589751-00

PATIENT
  Sex: Male
  Weight: 56.75 kg

DRUGS (3)
  1. NIASPAN [Suspect]
     Indication: BLOOD CHOLESTEROL INCREASED
     Dates: start: 20090707
  2. AMLODIPINE BESYLATE [Concomitant]
     Indication: HYPERTENSION
     Dates: start: 20090301
  3. ASPIRIN [Concomitant]
     Indication: PROPHYLAXIS
     Dates: start: 20090707

REACTIONS (1)
  - DIARRHOEA [None]
